FAERS Safety Report 8289733-7 (Version None)
Quarter: 2012Q2

REPORT INFORMATION
  Report Type: 
  Country: None (occurrence: None)
  Receive Date: 20120417
  Receipt Date: 20120409
  Transmission Date: 20120825
  Serious: No
  Sender: FDA-Public Use
  Company Number: US-PFIZER INC-2012091194

PATIENT
  Age: 67 Year
  Sex: Female

DRUGS (1)
  1. ATORVASTATIN CALCIUM [Suspect]
     Dosage: UNK

REACTIONS (6)
  - PAIN IN EXTREMITY [None]
  - HEART RATE IRREGULAR [None]
  - INFLAMMATION [None]
  - MUSCULAR WEAKNESS [None]
  - BACK PAIN [None]
  - DYSPNOEA [None]
